FAERS Safety Report 25493066 (Version 1)
Quarter: 2025Q2

REPORT INFORMATION
  Report Type: Spontaneous
  Country: US (occurrence: US)
  Receive Date: 20250630
  Receipt Date: 20250630
  Transmission Date: 20250717
  Serious: No
  Sender: UCB
  Company Number: US-UCBSA-2024060536

PATIENT
  Sex: Male

DRUGS (4)
  1. NAYZILAM [Suspect]
     Active Substance: MIDAZOLAM
     Indication: Epilepsy
     Route: 045
     Dates: start: 202408
  2. NAYZILAM [Suspect]
     Active Substance: MIDAZOLAM
     Indication: Seizure
  3. TRILEPTAL [Concomitant]
     Active Substance: OXCARBAZEPINE
     Indication: Epilepsy
  4. LAMICTAL [Concomitant]
     Active Substance: LAMOTRIGINE
     Indication: Epilepsy

REACTIONS (5)
  - Aggression [Recovered/Resolved]
  - Migraine [Recovered/Resolved]
  - Fatigue [Recovered/Resolved]
  - Mood altered [Recovered/Resolved]
  - Therapeutic product effect incomplete [Unknown]

NARRATIVE: CASE EVENT DATE: 20240101
